FAERS Safety Report 6272519-2 (Version None)
Quarter: 2009Q3

REPORT INFORMATION
  Report Type: 
  Country: None (occurrence: None)
  Receive Date: 20090717
  Receipt Date: 20090706
  Transmission Date: 20100115
  Serious: Yes (Other)
  Sender: FDA-Public Use
  Company Number: US-PFIZER INC-2009196197

PATIENT
  Sex: Female
  Weight: 83.9 kg

DRUGS (8)
  1. CHANTIX [Suspect]
     Indication: SMOKING CESSATION THERAPY
     Dosage: 1 MG, 2X/DAY
     Dates: start: 20060101, end: 20060101
  2. AMINO ACIDS [Concomitant]
     Dosage: UNK
  3. FISH OIL [Concomitant]
     Indication: CHRONIC HEPATITIS
     Dosage: UNK
  4. MIRTAZAPINE [Concomitant]
     Indication: DEPRESSION
     Dosage: UNK
  5. LORAZEPAM [Concomitant]
     Indication: INSOMNIA
     Dosage: UNK
  6. LORCET-HD [Concomitant]
     Indication: PAIN
     Dosage: UNK
  7. ALL OTHER NON-THERAPEUTIC PRODUCTS [Concomitant]
     Dosage: UNK
  8. CODEINE [Concomitant]
     Dosage: UNKNOWN

REACTIONS (2)
  - HOSTILITY [None]
  - SUICIDAL IDEATION [None]
